FAERS Safety Report 18656993 (Version 3)
Quarter: 2021Q2

REPORT INFORMATION
  Report Type: Report from Study
  Country: DE (occurrence: DE)
  Receive Date: 20201223
  Receipt Date: 20210614
  Transmission Date: 20210717
  Serious: Yes (Hospitalization, Other)
  Sender: FDA-Public Use
  Company Number: NVSC2020DE337712

PATIENT
  Age: 61 Year
  Sex: Male
  Weight: 118 kg

DRUGS (8)
  1. RAMIPRIL. [Concomitant]
     Active Substance: RAMIPRIL
     Indication: PRODUCT USED FOR UNKNOWN INDICATION
     Dosage: UNK, QD
     Route: 065
  2. ACETYLSALICYLIC ACID [Concomitant]
     Active Substance: ASPIRIN
     Indication: PRODUCT USED FOR UNKNOWN INDICATION
     Dosage: UNK, QD
     Route: 065
  3. TORASEMIDE [Concomitant]
     Active Substance: TORSEMIDE
     Indication: PRODUCT USED FOR UNKNOWN INDICATION
     Dosage: UNK, QD
     Route: 065
  4. COSENTYX [Suspect]
     Active Substance: SECUKINUMAB
     Dosage: 300 MG
     Route: 058
     Dates: start: 202007
  5. NEBIVOLOL. [Concomitant]
     Active Substance: NEBIVOLOL
     Indication: PRODUCT USED FOR UNKNOWN INDICATION
     Dosage: UNK, BID
     Route: 065
  6. COSENTYX [Suspect]
     Active Substance: SECUKINUMAB
     Indication: PSORIASIS
     Dosage: 300 MG, UNKNOWN
     Route: 058
     Dates: start: 20180608
  7. ATORVASTATIN [Concomitant]
     Active Substance: ATORVASTATIN
     Indication: PRODUCT USED FOR UNKNOWN INDICATION
     Dosage: UNK, QD
     Route: 065
  8. INSPRA [Concomitant]
     Active Substance: EPLERENONE
     Indication: PRODUCT USED FOR UNKNOWN INDICATION
     Dosage: UNK, QD
     Route: 065

REACTIONS (26)
  - Syncope [Recovered/Resolved]
  - Pulmonary hypertension [Recovered/Resolved]
  - Breath sounds abnormal [Unknown]
  - Tongue dry [Unknown]
  - Hypertensive heart disease [Unknown]
  - Tricuspid valve disease [Recovered/Resolved]
  - Epigastric discomfort [Unknown]
  - Arteriosclerosis [Unknown]
  - Erythema [Unknown]
  - Skin discolouration [Unknown]
  - Supraventricular extrasystoles [Unknown]
  - Mitral valve incompetence [Recovered/Resolved]
  - Carotid artery disease [Unknown]
  - Cerebral haemorrhage [Unknown]
  - Left ventricular failure [Recovered/Resolved]
  - Ventricular extrasystoles [Unknown]
  - Loss of consciousness [Recovered/Resolved]
  - Cardiac failure [Unknown]
  - Cerebrovascular accident [Unknown]
  - Diastolic dysfunction [Unknown]
  - Fall [Recovered/Resolved]
  - Pulmonary valve incompetence [Recovered/Resolved]
  - Extrasystoles [Unknown]
  - Dyspnoea exertional [Unknown]
  - Hypertension [Unknown]
  - Cerebral arteriosclerosis [Recovered/Resolved]

NARRATIVE: CASE EVENT DATE: 20201008
